FAERS Safety Report 19115955 (Version 1)
Quarter: 2021Q2

REPORT INFORMATION
  Report Type: Other
  Country: FR (occurrence: FR)
  Receive Date: 20210409
  Receipt Date: 20210409
  Transmission Date: 20210717
  Serious: Yes (Hospitalization, Other)
  Sender: FDA-Public Use
  Company Number: FR-NEOPHARMA INC-000528

PATIENT
  Age: 74 Year
  Sex: Male

DRUGS (1)
  1. AMOXICILLIN. [Suspect]
     Active Substance: AMOXICILLIN
     Indication: INTERVERTEBRAL DISCITIS
     Dosage: 15 G/DAY OR 200 MG/KG/DAY, AS DISCONTINUOUS INTRAVENOUS INFUSION.
     Route: 042

REACTIONS (7)
  - Leukocyturia [Recovered/Resolved]
  - Crystal nephropathy [Recovered/Resolved]
  - Pulmonary oedema [Unknown]
  - Anuria [Recovered/Resolved]
  - Acute kidney injury [Recovered/Resolved]
  - Haematuria [Recovered/Resolved]
  - Crystalluria [Recovered/Resolved]
